FAERS Safety Report 5729220-0 (Version None)
Quarter: 2008Q2

REPORT INFORMATION
  Report Type: 
  Country: None (occurrence: None)
  Receive Date: 20080506
  Receipt Date: 20080421
  Transmission Date: 20081010
  Serious: Yes (Other)
  Sender: FDA-Public Use
  Company Number: FR-PFIZER INC-2007083094

PATIENT
  Sex: Female

DRUGS (4)
  1. CHANTIX [Suspect]
  2. SOLUPRED [Suspect]
  3. XANAX [Concomitant]
  4. DEROXAT [Concomitant]

REACTIONS (2)
  - MUSCLE SPASMS [None]
  - PANIC ATTACK [None]
